FAERS Safety Report 5556254-1 (Version None)
Quarter: 2007Q4

REPORT INFORMATION
  Report Type: 
  Country: None (occurrence: None)
  Receive Date: 20071204
  Receipt Date: 20071122
  Transmission Date: 20080405
  Serious: Yes (Other)
  Sender: FDA-Public Use
  Company Number: CHNY2007GB01477

PATIENT
  Age: 55 Year
  Sex: Male

DRUGS (3)
  1. SCOPODERM TTS (NCH)(HYOSCINE HYDROBROMIDE) TRANS-THERAPEUTIC-SYSTEM [Suspect]
     Indication: SALIVARY HYPERSECRETION
     Dosage: 1 DF, Q72H, TRANSDERMAL
     Route: 062
  2. STEROIDS NOS [Concomitant]
  3. LANZOPRAZOL (LANZOPRAZOL) [Concomitant]

REACTIONS (5)
  - CEREBROVASCULAR ACCIDENT [None]
  - CHOLELITHIASIS [None]
  - DERMATOMYOSITIS [None]
  - OFF LABEL USE [None]
  - RASH [None]
